FAERS Safety Report 17256370 (Version 1)
Quarter: 2019Q4

REPORT INFORMATION
  Report Type: Spontaneous
  Country: US (occurrence: US)
  Receive Date: 20191216
  Receipt Date: 20191216
  Transmission Date: 20200122
  Serious: Yes (Hospitalization)
  Sender: FDA-Public Use
  Company Number: None

PATIENT
  Age: 88 Year
  Sex: Male
  Weight: 69 kg

DRUGS (1)
  1. TAMSULOSIN (TAMSULOSIN HCL 0.4MG CAP) [Suspect]
     Active Substance: TAMSULOSIN
     Indication: BENIGN PROSTATIC HYPERPLASIA
     Route: 048
     Dates: start: 20191121, end: 20191204

REACTIONS (2)
  - Syncope [None]
  - Hypotension [None]

NARRATIVE: CASE EVENT DATE: 20191202
